FAERS Safety Report 5336608-9 (Version None)
Quarter: 2007Q2

REPORT INFORMATION
  Report Type: 
  Country: None (occurrence: None)
  Receive Date: 20070529
  Receipt Date: 20070518
  Transmission Date: 20071010
  Serious: Yes (Other)
  Sender: FDA-Public Use
  Company Number: US-JNJFOC-20070505475

PATIENT
  Sex: Male
  Weight: 81.19 kg

DRUGS (17)
  1. FENTANYL TRANSDERMAL SYSTEM [Suspect]
     Indication: PAIN
     Route: 062
  2. BACTRIM [Suspect]
     Indication: COMPLICATIONS OF TRANSPLANTED LUNG
     Dosage: 160MG/800MG CRUSHED FOR PEG TUBE
     Route: 065
  3. PREVACID [Concomitant]
     Indication: GASTROINTESTINAL DISORDER
     Dosage: CRUSHED FOR PEG TUBE
     Route: 065
  4. NORVASC [Concomitant]
     Indication: HYPERTENSION
     Dosage: CRUSHED FOR PEG TUBE
     Route: 065
  5. ARICEPT [Concomitant]
     Indication: MEMORY IMPAIRMENT
     Dosage: CRUSHED FOR PEG TUBE
     Route: 065
  6. MIRAPEX [Concomitant]
     Indication: PARKINSON'S DISEASE
     Dosage: CRUSHED FOR PEG TUBE
     Route: 065
  7. MEVACOR [Concomitant]
     Indication: BLOOD CHOLESTEROL INCREASED
     Dosage: CRUSHED FOR PEG TUBE
     Route: 065
  8. IMURAN [Concomitant]
     Dosage: CRUSHED FOR PEG TUBE
     Route: 065
  9. TRAZODONE HCL [Concomitant]
     Indication: SLEEP DISORDER
     Dosage: CRUSHED FOR PEG TUBE, AT BEDTIME
     Route: 065
  10. CYCLOSPORINE [Concomitant]
     Dosage: PEG TUBE
     Route: 065
  11. SYNTHROID [Concomitant]
     Dosage: CRUSHED FOR PEG TUBE
     Route: 065
  12. XANAX [Concomitant]
     Indication: ANXIETY
     Dosage: CRUSHED FOR PEG TUBE, EVERY 6 HRS AS NEEDED
     Route: 065
  13. ZYPREXA [Concomitant]
     Indication: DEPRESSION
     Dosage: CRUSHED FOR PER TUBE, AT BEDTIME
     Route: 065
  14. ZOLOFT [Concomitant]
     Indication: DEPRESSION
     Dosage: CRUSHED FOR PER TUBE
     Route: 065
  15. SALAGEN [Concomitant]
     Indication: SALIVARY GLAND DISORDER
     Dosage: CRUSHED FOR PER TUBE
     Route: 065
  16. MEGESTROL ACETATE [Concomitant]
     Indication: APPETITE DISORDER
     Dosage: 4 TSP IN PEG TUBE
     Route: 065
  17. COLACE [Concomitant]
     Indication: CONSTIPATION
     Dosage: 10ML IN PEG TUBE
     Route: 065

REACTIONS (3)
  - APPLICATION SITE ERYTHEMA [None]
  - SKIN LACERATION [None]
  - WHITE BLOOD CELL COUNT DECREASED [None]
